FAERS Safety Report 9057556 (Version 1)
Quarter: 2013Q1

REPORT INFORMATION
  Report Type: Spontaneous
  Country: US (occurrence: US)
  Receive Date: 20130204
  Receipt Date: 20130204
  Transmission Date: 20140127
  Serious: No
  Sender: FDA-Public Use
  Company Number: US-PFIZER INC-2013041671

PATIENT
  Age: 35 Year
  Sex: Female

DRUGS (1)
  1. GENOTROPIN MINIQUICK [Suspect]
     Indication: GROWTH HORMONE DEFICIENCY
     Dosage: 0.6 MG,DAILY
     Dates: start: 201209

REACTIONS (1)
  - Oedema [Unknown]
